FAERS Safety Report 4779835-1 (Version None)
Quarter: 2005Q3

REPORT INFORMATION
  Report Type: 
  Country: None (occurrence: None)
  Receive Date: 20050927
  Receipt Date: 20050921
  Transmission Date: 20060218
  Serious: Yes (Other)
  Sender: FDA-Public Use
  Company Number: 200516672US

PATIENT
  Sex: Male
  Weight: 70 kg

DRUGS (19)
  1. DDAVP [Suspect]
     Route: 042
     Dates: start: 20050911, end: 20050921
  2. HEPARIN [Concomitant]
     Dosage: DOSE: UNKNOWN
     Route: 042
  3. ARGATROBAN [Concomitant]
     Dosage: DOSE: UNKNOWN
  4. CIPROFLOXACIN [Concomitant]
     Dosage: DOSE: UNKNOWN
  5. EPOGEN [Concomitant]
     Dosage: DOSE: UNKNOWN
  6. NOVOLOG [Concomitant]
     Dosage: DOSE: SLIDING SCALE
  7. PROTONIX [Concomitant]
     Dosage: DOSE: UNKNOWN
  8. REGLAN [Concomitant]
     Dosage: DOSE: UNKNOWN
  9. SOLU-MEDROL [Concomitant]
     Dosage: DOSE: UNKNOWN
  10. VANCOMYCIN [Concomitant]
     Dosage: DOSE: UNKNOWN
  11. XOPENEX [Concomitant]
     Dosage: DOSE: UNKNOWN
  12. FENTANYL [Concomitant]
     Dosage: DOSE: UNKNOWN
  13. ROCEPHIN [Concomitant]
     Dosage: DOSE: UNKNOWN
  14. FORTAZ [Concomitant]
     Dosage: DOSE: UNKNOWN
  15. CLEOCIN [Concomitant]
     Dosage: DOSE: UNKNOWN
  16. UNASYN ORAL SUSPENSION [Concomitant]
     Dosage: DOSE: UNKNOWN
  17. DECADRON [Concomitant]
     Dosage: DOSE: UNKNOWN
  18. DIPRIVAN [Concomitant]
     Dosage: DOSE: UNKNOWN
  19. CEREBYX [Concomitant]
     Dosage: DOSE: UNKNOWN

REACTIONS (1)
  - HAEMOLYTIC ANAEMIA [None]
